FAERS Safety Report 18368593 (Version 1)
Quarter: 2020Q4

REPORT INFORMATION
  Report Type: Spontaneous
  Country: US (occurrence: US)
  Receive Date: 20201010
  Receipt Date: 20201010
  Transmission Date: 20210114
  Serious: No
  Sender: FDA-Public Use
  Company Number: US-IPSEN BIOPHARMACEUTICALS, INC.-2020-11829

PATIENT
  Sex: Male
  Weight: 95.25 kg

DRUGS (1)
  1. SOMATULINE DEPOT [Suspect]
     Active Substance: LANREOTIDE ACETATE
     Indication: GIGANTISM
     Dosage: UNDER THE SKIN, 120 MG/0.5ML
     Route: 058

REACTIONS (3)
  - Constipation [Unknown]
  - Depression [Unknown]
  - Product dose omission issue [Unknown]
